FAERS Safety Report 9095360 (Version 2)
Quarter: 2013Q1

REPORT INFORMATION
  Report Type: Spontaneous
  Country: US (occurrence: None)
  Receive Date: 20130123
  Receipt Date: 20130225
  Transmission Date: 20140127
  Serious: Yes (Hospitalization)
  Sender: FDA-Public Use
  Company Number: CRC-13-019

PATIENT
  Age: 61 Year
  Sex: Female
  Weight: 81.65 kg

DRUGS (1)
  1. METOPROLOL TARTRATE [Suspect]
     Indication: HYPERTENSION
     Dosage: 1 TAB
     Route: 048
     Dates: start: 201206, end: 201209

REACTIONS (6)
  - Malaise [None]
  - Joint swelling [None]
  - Heart rate irregular [None]
  - Impaired driving ability [None]
  - Product formulation issue [None]
  - Product quality issue [None]
